FAERS Safety Report 22888890 (Version 3)
Quarter: 2024Q1

REPORT INFORMATION
  Report Type: Spontaneous
  Country: HU (occurrence: HU)
  Receive Date: 20230831
  Receipt Date: 20240205
  Transmission Date: 20240409
  Serious: Yes (Congenital Anomaly, Other)
  Sender: FDA-Public Use
  Company Number: HU-GLPHARMA-23.0934

PATIENT
  Age: 44 Year
  Sex: Female

DRUGS (3)
  1. LAMOTRIGINE [Suspect]
     Active Substance: LAMOTRIGINE
     Indication: Seizure
     Dosage: 25 MILLIGRAM, BID
     Route: 065
  2. LAMOTRIGINE [Suspect]
     Active Substance: LAMOTRIGINE
     Indication: Epilepsy
  3. LEVETIRACETAM [Concomitant]
     Active Substance: LEVETIRACETAM
     Indication: Seizure
     Dosage: 500 MILLIGRAM, BID (2?500 MG)
     Route: 065

REACTIONS (5)
  - Agonal respiration [Unknown]
  - Ventricular tachycardia [Unknown]
  - Brugada syndrome [Unknown]
  - Arrhythmia [Unknown]
  - Ventricular extrasystoles [Unknown]
